FAERS Safety Report 7636968-X (Version None)
Quarter: 2011Q3

REPORT INFORMATION
  Report Type: 
  Country: None (occurrence: None)
  Receive Date: 20110726
  Receipt Date: 20110726
  Transmission Date: 20111222
  Serious: No
  Sender: FDA-Public Use
  Company Number: US-ROXANE LABORATORIES, INC.-2011-RO-01065RO

PATIENT
  Sex: Female

DRUGS (3)
  1. HYDROXYUREA [Suspect]
  2. ANAGRELIDE HYDROCHLORIDE [Suspect]
  3. HYDROCHLOROTHIAZIDE [Suspect]

REACTIONS (4)
  - VISUAL IMPAIRMENT [None]
  - FALL [None]
  - BLOOD PRESSURE INCREASED [None]
  - DEHYDRATION [None]
